FAERS Safety Report 13446698 (Version 2)
Quarter: 2019Q1

REPORT INFORMATION
  Report Type: Spontaneous
  Country: CA (occurrence: CA)
  Receive Date: 20170417
  Receipt Date: 20190214
  Transmission Date: 20190417
  Serious: Yes (Hospitalization, Other)
  Sender: FDA-Public Use
  Company Number: CA-JNJFOC-20170408807

PATIENT
  Age: 45 Year
  Sex: Female
  Weight: 60 kg

DRUGS (1)
  1. ACETAMINOPHEN. [Suspect]
     Active Substance: ACETAMINOPHEN
     Indication: PRODUCT USED FOR UNKNOWN INDICATION
     Route: 048

REACTIONS (11)
  - Suicide attempt [Unknown]
  - International normalised ratio increased [Unknown]
  - Metabolic acidosis [Unknown]
  - Agitation [Unknown]
  - Nausea [Unknown]
  - Hepatic enzyme increased [Recovering/Resolving]
  - Delusion [Unknown]
  - Vomiting [Unknown]
  - Confusional state [Unknown]
  - Acute kidney injury [Recovering/Resolving]
  - Overdose [Unknown]

NARRATIVE: CASE EVENT DATE: 200305
